FAERS Safety Report 12860849 (Version 1)
Quarter: 2016Q4

REPORT INFORMATION
  Report Type: Report from Study
  Country: SE (occurrence: BD)
  Receive Date: 20161019
  Receipt Date: 20161019
  Transmission Date: 20170207
  Serious: Yes (Other)
  Sender: FDA-Public Use
  Company Number: SE-CIPLA LTD.-2016BD19710

PATIENT

DRUGS (15)
  1. VITAMIN E [Suspect]
     Active Substance: .ALPHA.-TOCOPHEROL
     Indication: NUTRITIONAL SUPPLEMENTATION
     Dosage: 10 MG, UNK
     Route: 065
  2. VITAMIN B2 [Suspect]
     Active Substance: RIBOFLAVIN
     Indication: NUTRITIONAL SUPPLEMENTATION
     Dosage: 1.4 MG, UNK
     Route: 065
  3. COPPER SULPHATE [Suspect]
     Active Substance: CUPRIC SULFATE ANHYDROUS
     Indication: NUTRITIONAL SUPPLEMENTATION
     Dosage: 2 MG, UNK
     Route: 065
  4. IRON FUMARATE [Suspect]
     Active Substance: FERROUS FUMARATE
     Indication: NUTRITIONAL SUPPLEMENTATION
     Dosage: 30 MG, UNK
     Route: 065
  5. VITAMIN B1 [Suspect]
     Active Substance: THIAMINE HYDROCHLORIDE
     Indication: NUTRITIONAL SUPPLEMENTATION
     Dosage: 1.4 MG, UNK
     Route: 065
  6. VITAMIN B6 [Suspect]
     Active Substance: PYRIDOXINE HYDROCHLORIDE
     Indication: NUTRITIONAL SUPPLEMENTATION
     Dosage: 1.9 MG, UNK
     Route: 065
  7. VITAMIN B12 [Suspect]
     Active Substance: CYANOCOBALAMIN
     Indication: NUTRITIONAL SUPPLEMENTATION
     Dosage: 2.6 ?G, UNK
     Route: 065
  8. SELENIUM (SODIUM SELENITE) [Suspect]
     Active Substance: SODIUM SELENITE
     Indication: NUTRITIONAL SUPPLEMENTATION
     Dosage: 65 ?G, UNK
     Route: 065
  9. RE VITAMIN A (RETINYL ACETATE) [Suspect]
     Active Substance: VITAMIN A ACETATE
     Indication: NUTRITIONAL SUPPLEMENTATION
     Dosage: 800 ?G, UNK
     Route: 065
  10. VITAMIN D3 [Suspect]
     Active Substance: CHOLECALCIFEROL
     Indication: NUTRITIONAL SUPPLEMENTATION
     Dosage: 200 IU, UNK
     Route: 065
  11. NIACIN. [Suspect]
     Active Substance: NIACIN
     Indication: NUTRITIONAL SUPPLEMENTATION
     Dosage: 18 MG, UNK
     Route: 065
  12. ZINC SULFATE [Suspect]
     Active Substance: ZINC SULFATE\ZINC SULFATE ANHYDROUS
     Indication: NUTRITIONAL SUPPLEMENTATION
     Dosage: 15 MG, UNK
     Route: 065
  13. FOLIC ACID. [Suspect]
     Active Substance: FOLIC ACID
     Indication: NUTRITIONAL SUPPLEMENTATION
     Dosage: 400 ?G, UNK
     Route: 065
  14. VITAMIN C [Suspect]
     Active Substance: ASCORBIC ACID
     Indication: NUTRITIONAL SUPPLEMENTATION
     Dosage: 70 MG, UNK
     Route: 065
  15. POTASSIUM IODIDE. [Suspect]
     Active Substance: POTASSIUM IODIDE
     Indication: NUTRITIONAL SUPPLEMENTATION
     Dosage: 150 ?G, UNK
     Route: 065

REACTIONS (2)
  - Abortion spontaneous [Unknown]
  - Exposure during pregnancy [Unknown]
